FAERS Safety Report 24453385 (Version 2)
Quarter: 2024Q4

REPORT INFORMATION
  Report Type: Report from Study
  Country: US (occurrence: US)
  Receive Date: 20241017
  Receipt Date: 20241018
  Transmission Date: 20250115
  Serious: No
  Sender: ROCHE
  Company Number: US-ROCHE-3254588

PATIENT
  Age: 54 Year
  Sex: Female

DRUGS (12)
  1. RITUXAN [Suspect]
     Active Substance: RITUXIMAB
     Indication: Polyneuropathy
     Dosage: DATE OF SERVICE: 31/JUL/2023
     Route: 065
  2. RITUXAN [Suspect]
     Active Substance: RITUXIMAB
     Indication: Acute kidney injury
  3. VENTOLIN [Concomitant]
     Active Substance: ALBUTEROL SULFATE
  4. LIPITOR [Concomitant]
     Active Substance: ATORVASTATIN CALCIUM
  5. OPTIVAR [Concomitant]
     Active Substance: AZELASTINE HYDROCHLORIDE
  6. VITAMIN D3 [Concomitant]
     Active Substance: CHOLECALCIFEROL
  7. FLOVENT [Concomitant]
     Active Substance: FLUTICASONE PROPIONATE
  8. NEURONTIN [Concomitant]
     Active Substance: GABAPENTIN
  9. LANTUS [Concomitant]
     Active Substance: INSULIN GLARGINE
  10. HUMALOG [Concomitant]
     Active Substance: INSULIN LISPRO
  11. LOPRESSOR [Concomitant]
     Active Substance: METOPROLOL TARTRATE
  12. PROTONIX [Concomitant]
     Active Substance: PANTOPRAZOLE SODIUM

REACTIONS (2)
  - Off label use [Unknown]
  - No adverse event [Unknown]
